FAERS Safety Report 23054963 (Version 1)
Quarter: 2023Q4

REPORT INFORMATION
  Report Type: Spontaneous
  Country: US (occurrence: US)
  Receive Date: 20231011
  Receipt Date: 20231011
  Transmission Date: 20240109
  Serious: Yes (Death, Disabling, Other)
  Sender: FDA-Public Use
  Company Number: US-OPELLA-2023OHG010325

PATIENT
  Age: 83 Year
  Sex: Male

DRUGS (2)
  1. TALC [Suspect]
     Active Substance: TALC
  2. DESENEX NOS [Suspect]
     Active Substance: CLOTRIMAZOLE OR MICONAZOLE NITRATE
     Dosage: UNKNOWN

REACTIONS (8)
  - Mesothelioma [Fatal]
  - Exposure to chemical pollution [Fatal]
  - Cardio-respiratory arrest [Fatal]
  - Lung cancer metastatic [Fatal]
  - Disability [Unknown]
  - Depression [Unknown]
  - Pain [Unknown]
  - Anxiety [Unknown]
